FAERS Safety Report 10297369 (Version 1)
Quarter: 2014Q3

REPORT INFORMATION
  Report Type: Spontaneous
  Country: CA (occurrence: CA)
  Receive Date: 20140711
  Receipt Date: 20140711
  Transmission Date: 20150326
  Serious: Yes (Hospitalization)
  Sender: FDA-Public Use
  Company Number: PHHY2014CA084719

PATIENT
  Age: 78 Year
  Sex: Male

DRUGS (7)
  1. COVERSYL PLUS                      /01421201/ [Concomitant]
     Dosage: UNK UKN, UNK
  2. TAMSULOSIN [Concomitant]
     Active Substance: TAMSULOSIN
     Dosage: UNK UKN, UNK
  3. LAMISIL [Suspect]
     Active Substance: TERBINAFINE HYDROCHLORIDE
     Dosage: 1 DF, QD
     Route: 048
  4. TIAZAC XC [Concomitant]
     Dosage: UNK UKN, UNK
  5. AVODART [Concomitant]
     Active Substance: DUTASTERIDE
     Dosage: UNK UKN, UNK
  6. WARFARIN [Concomitant]
     Active Substance: WARFARIN
     Dosage: UNK UKN, UNK
  7. CRESTOR [Concomitant]
     Active Substance: ROSUVASTATIN CALCIUM
     Dosage: UNK UKN, UNK

REACTIONS (3)
  - Syncope [Recovered/Resolved]
  - Bradycardia [Recovered/Resolved]
  - Orthostatic intolerance [Recovered/Resolved]
